FAERS Safety Report 16611899 (Version 2)
Quarter: 2019Q3

REPORT INFORMATION
  Report Type: Other
  Country: US (occurrence: US)
  Receive Date: 20190722
  Receipt Date: 20190905
  Transmission Date: 20191004
  Serious: Yes (Hospitalization, Other)
  Sender: FDA-Public Use
  Company Number: US-AMAG PHARMACEUTICALS, INC.-AMAG201903738

PATIENT
  Age: 0 Day
  Sex: Female
  Weight: 2.23 kg

DRUGS (1)
  1. MAKENA [Suspect]
     Active Substance: HYDROXYPROGESTERONE CAPROATE
     Indication: FOETAL EXPOSURE DURING PREGNANCY
     Dosage: 250MG/ML, WEEKLY
     Route: 064
     Dates: end: 20190701

REACTIONS (1)
  - Premature baby [Recovered/Resolved]

NARRATIVE: CASE EVENT DATE: 20190711
